FAERS Safety Report 9219392 (Version 2)
Quarter: 2013Q2

REPORT INFORMATION
  Report Type: Spontaneous
  Country: US (occurrence: US)
  Receive Date: 20130409
  Receipt Date: 20130524
  Transmission Date: 20140414
  Serious: Yes (Other)
  Sender: FDA-Public Use
  Company Number: US-PFIZER INC-2013106573

PATIENT
  Age: 71 Year
  Sex: Male
  Weight: 90.7 kg

DRUGS (8)
  1. VIAGRA [Suspect]
     Indication: ERECTILE DYSFUNCTION
     Dosage: UNK, AS NEEDED
     Route: 048
  2. VIAGRA [Suspect]
     Dosage: 25 MG, AS NEEDED
     Route: 048
  3. VIAGRA [Suspect]
     Dosage: 50 MG, AS NEEDED
     Route: 048
  4. VIAGRA [Suspect]
     Dosage: 100 MG, AS NEEDED
     Route: 048
     Dates: end: 201303
  5. VIAGRA [Suspect]
     Dosage: 1 PILL A WEEK
  6. RYTHMOL [Concomitant]
     Dosage: UNK
  7. ECOTRIN [Concomitant]
     Dosage: UNK
  8. XANAX [Concomitant]
     Dosage: 0.25 MG, 1X/DAY

REACTIONS (4)
  - Cataract [Unknown]
  - Vision blurred [Recovered/Resolved]
  - Drug effect incomplete [Unknown]
  - Feeling abnormal [Unknown]
